FAERS Safety Report 8953759 (Version 1)
Quarter: 2012Q4

REPORT INFORMATION
  Report Type: 
  Country: US (occurrence: US)
  Receive Date: 20121206
  Receipt Date: 20121206
  Transmission Date: 20130627
  Serious: No
  Sender: FDA-Public Use
  Company Number: US-009507513-1212USA001737

PATIENT
  Age: 19 Year
  Sex: Female
  Weight: 58.5 kg

DRUGS (4)
  1. IMPLANON [Suspect]
     Indication: CONTRACEPTION
     Dosage: UNK
     Dates: start: 201004
  2. ZOLOFT [Concomitant]
  3. SONATA [Concomitant]
  4. HYDROXYZINE [Concomitant]

REACTIONS (2)
  - Amenorrhoea [Recovered/Resolved]
  - Menstruation irregular [Unknown]
